FAERS Safety Report 14549334 (Version 1)
Quarter: 2018Q1

REPORT INFORMATION
  Report Type: Spontaneous
  Country: IR (occurrence: IR)
  Receive Date: 20180219
  Receipt Date: 20180219
  Transmission Date: 20180509
  Serious: Yes (Death, Hospitalization)
  Sender: FDA-Public Use
  Company Number: IR-UNICHEM PHARMACEUTICALS (USA) INC-UCM201802-000029

PATIENT
  Age: 25 Year
  Sex: Male

DRUGS (14)
  1. CALCIUM GLUCONATE. [Concomitant]
     Active Substance: CALCIUM GLUCONATE
  2. CALCIUM GLUCONATE. [Concomitant]
     Active Substance: CALCIUM GLUCONATE
     Route: 042
  3. AMLODIPINE BESYLATE 5MG TABLETS [Suspect]
     Active Substance: AMLODIPINE BESYLATE
     Dosage: (90 TABLETS-5?MG EACH)
  4. NOREPINEPHRINE. [Concomitant]
     Active Substance: NOREPINEPHRINE
     Indication: MULTIPLE ORGAN DYSFUNCTION SYNDROME
     Dosage: 5 ?MCG/MIN
  5. CALCIUM GLUCONATE. [Concomitant]
     Active Substance: CALCIUM GLUCONATE
  6. FUROSEMIDE. [Concomitant]
     Active Substance: FUROSEMIDE
  7. GLUCOSE [Concomitant]
     Active Substance: DEXTROSE
  8. CALCIUM [Concomitant]
     Active Substance: CALCIUM
  9. NOREPINEPHRINE. [Concomitant]
     Active Substance: NOREPINEPHRINE
  10. INSULIN [Concomitant]
     Active Substance: INSULIN NOS
     Dosage: 0.5?UNIT/KG/H
  11. SODIUM CARBONATE [Concomitant]
     Active Substance: SODIUM CARBONATE
     Dosage: 100?MEQ
  12. CALCIUM [Concomitant]
     Active Substance: CALCIUM
     Dosage: AT 30 HRS
  13. INSULIN [Concomitant]
     Active Substance: INSULIN NOS
  14. GLUCAGON. [Concomitant]
     Active Substance: GLUCAGON
     Route: 042

REACTIONS (16)
  - Anuria [Not Recovered/Not Resolved]
  - Pulmonary oedema [Recovered/Resolved]
  - Intentional overdose [Not Recovered/Not Resolved]
  - Metabolic acidosis [Not Recovered/Not Resolved]
  - Rhabdomyolysis [Not Recovered/Not Resolved]
  - Shock [Not Recovered/Not Resolved]
  - Hepatic failure [Not Recovered/Not Resolved]
  - Multiple organ dysfunction syndrome [Not Recovered/Not Resolved]
  - Tachycardia [Not Recovered/Not Resolved]
  - Death [Fatal]
  - Toxicity to various agents [Not Recovered/Not Resolved]
  - Nausea [Not Recovered/Not Resolved]
  - Condition aggravated [Not Recovered/Not Resolved]
  - Hypotension [Not Recovered/Not Resolved]
  - Pyrexia [Not Recovered/Not Resolved]
  - Abdominal discomfort [Not Recovered/Not Resolved]
